FAERS Safety Report 7151170-6 (Version None)
Quarter: 2010Q4

REPORT INFORMATION
  Report Type: 
  Country: None (occurrence: None)
  Receive Date: 20101124
  Receipt Date: 20101112
  Transmission Date: 20110411
  Serious: Yes (Hospitalization, Disabling, Other)
  Sender: FDA-Public Use
  Company Number: 016946

PATIENT
  Age: 27 Year
  Sex: Male
  Weight: 98 kg

DRUGS (2)
  1. KEPPRA [Suspect]
     Indication: CONVULSION
     Dosage: (100 MG EVERY OTHER DAY) (300 MG EVERY OTHER DAY)
     Dates: start: 20051115, end: 20060301
  2. KEPPRA [Suspect]
     Indication: CONVULSION
     Dosage: (100 MG EVERY OTHER DAY) (300 MG EVERY OTHER DAY)
     Dates: start: 20060301, end: 20090601

REACTIONS (3)
  - FEMORAL NECK FRACTURE [None]
  - HIP FRACTURE [None]
  - OSTEONECROSIS [None]
